FAERS Safety Report 9823405 (Version 2)
Quarter: 2014Q1

REPORT INFORMATION
  Report Type: Spontaneous
  Country: US (occurrence: US)
  Receive Date: 20140116
  Receipt Date: 20140116
  Transmission Date: 20141002
  Serious: No
  Sender: FDA-Public Use
  Company Number: US-GILEAD-2011-0035021

PATIENT
  Sex: Female
  Weight: 73.48 kg

DRUGS (11)
  1. LETAIRIS [Suspect]
     Indication: PULMONARY HYPERTENSION
     Route: 048
     Dates: start: 20101201, end: 20101223
  2. LETAIRIS [Suspect]
     Indication: SARCOIDOSIS
  3. REVATIO [Concomitant]
  4. FLOLAN [Concomitant]
  5. SIMVASTATIN [Concomitant]
  6. SPIRONOLACTONE [Concomitant]
  7. FUROSEMIDE [Concomitant]
  8. IMODIUM [Concomitant]
  9. SYNTHROID [Concomitant]
  10. CELEXA [Concomitant]
  11. AMBIEN [Concomitant]

REACTIONS (4)
  - Insomnia [Unknown]
  - Nasal congestion [Recovered/Resolved]
  - Headache [Unknown]
  - Fluid retention [Unknown]
